FAERS Safety Report 8768483 (Version 2)
Quarter: 2013Q4

REPORT INFORMATION
  Report Type: Spontaneous
  Country: US (occurrence: US)
  Receive Date: 20120905
  Receipt Date: 20131101
  Transmission Date: 20140711
  Serious: No
  Sender: FDA-Public Use
  Company Number: US-009507513-1205USA00658

PATIENT
  Age: 47 Year
  Sex: Male

DRUGS (12)
  1. ISENTRESS [Suspect]
     Indication: HIV INFECTION
     Dosage: 400 MG, BID
     Route: 048
     Dates: start: 2010
  2. ACYCLOVIR [Concomitant]
  3. EMTRIVA [Concomitant]
  4. FLUCONAZOLE [Concomitant]
  5. LIPITOR [Concomitant]
  6. NORVIR [Concomitant]
  7. PATANOL [Concomitant]
  8. PREZISTA [Concomitant]
  9. PROSCAR [Concomitant]
     Route: 048
  10. ERGOCALCIFEROL [Concomitant]
  11. INTELENCE [Concomitant]
  12. ALENDRONATE SODIUM [Concomitant]

REACTIONS (2)
  - Skin warm [Recovered/Resolved]
  - Rash [Recovered/Resolved]
